FAERS Safety Report 15457785 (Version 1)
Quarter: 2018Q4

REPORT INFORMATION
  Report Type: Other
  Country: JP (occurrence: JP)
  Receive Date: 20181003
  Receipt Date: 20181003
  Transmission Date: 20190204
  Serious: Yes (Life-Threatening, Hospitalization)
  Sender: FDA-Public Use
  Company Number: JP-SAPTALIS PHARMACEUTICALS LLC-2055616

PATIENT
  Age: 73 Year
  Sex: Female

DRUGS (3)
  1. ADRENALINE [Suspect]
     Active Substance: EPINEPHRINE
     Route: 065
  2. LORAZEPAM. [Suspect]
     Active Substance: LORAZEPAM
     Indication: PRODUCT USED FOR UNKNOWN INDICATION
     Route: 065
  3. ESCITALOPRAM [Suspect]
     Active Substance: ESCITALOPRAM OXALATE
     Route: 065

REACTIONS (3)
  - Pulseless electrical activity [Recovering/Resolving]
  - Haemolytic anaemia [Recovering/Resolving]
  - Left ventricular dysfunction [Recovering/Resolving]
